FAERS Safety Report 21704881 (Version 2)
Quarter: 2023Q1

REPORT INFORMATION
  Report Type: Report from Study
  Country: US (occurrence: US)
  Receive Date: 20221209
  Receipt Date: 20230222
  Transmission Date: 20230417
  Serious: No
  Sender: FDA-Public Use
  Company Number: US-SA-SAC20221207001261

PATIENT
  Age: 88 Year
  Sex: Male

DRUGS (5)
  1. DUPIXENT [Suspect]
     Active Substance: DUPILUMAB
     Indication: Pemphigoid
     Dosage: 600 MG, 1X
     Route: 058
     Dates: start: 20221123, end: 20221123
  2. DUPIXENT [Suspect]
     Active Substance: DUPILUMAB
     Dosage: 300 MG, QOW
     Route: 058
     Dates: start: 2022
  3. KEYTRUDA [Concomitant]
     Active Substance: PEMBROLIZUMAB
     Dates: start: 20210827
  4. DOXYCYCLINE [Concomitant]
     Active Substance: DOXYCYCLINE
  5. HYDROXYZINE [Concomitant]
     Active Substance: HYDROXYZINE HYDROCHLORIDE
     Dosage: TAKES 2 TABLETS A DAY

REACTIONS (3)
  - Pruritus [Unknown]
  - Rash [Unknown]
  - Product use in unapproved indication [Unknown]

NARRATIVE: CASE EVENT DATE: 20221123
